FAERS Safety Report 13039136 (Version 2)
Quarter: 2017Q1

REPORT INFORMATION
  Report Type: Spontaneous
  Country: US (occurrence: US)
  Receive Date: 20161219
  Receipt Date: 20170323
  Transmission Date: 20170428
  Serious: Yes (Other)
  Sender: FDA-Public Use
  Company Number: PHHY2016US171669

PATIENT
  Age: 49 Year
  Sex: Female

DRUGS (2)
  1. OCTREOTIDE. [Suspect]
     Active Substance: OCTREOTIDE
     Indication: PARAGANGLION NEOPLASM
     Route: 065
  2. PAZOPANIB [Suspect]
     Active Substance: PAZOPANIB
     Indication: PARAGANGLION NEOPLASM
     Route: 065

REACTIONS (4)
  - Malignant neoplasm progression [Recovering/Resolving]
  - Maternal exposure during pregnancy [Unknown]
  - Paraganglion neoplasm [Recovering/Resolving]
  - Product use issue [Unknown]
